FAERS Safety Report 9426926 (Version 1)
Quarter: 2013Q3

REPORT INFORMATION
  Report Type: Spontaneous
  Country: US (occurrence: US)
  Receive Date: 20130730
  Receipt Date: 20130730
  Transmission Date: 20140515
  Serious: Yes (Death)
  Sender: FDA-Public Use
  Company Number: US-ASTELLAS-2013US007940

PATIENT
  Age: 61 Year
  Sex: Male

DRUGS (1)
  1. PROGRAF [Suspect]
     Indication: HEART TRANSPLANT
     Dosage: 2 MG, BID
     Route: 048
     Dates: end: 20130710

REACTIONS (1)
  - Unevaluable event [Fatal]
